FAERS Safety Report 23458995 (Version 1)
Quarter: 2024Q1

REPORT INFORMATION
  Report Type: Spontaneous
  Country: US (occurrence: US)
  Receive Date: 20240131
  Receipt Date: 20240131
  Transmission Date: 20240410
  Serious: Yes (Hospitalization, Other)
  Sender: FDA-Public Use
  Company Number: US-ABBVIE-5602590

PATIENT
  Age: 88 Year
  Sex: Male

DRUGS (2)
  1. REFRESH OPTIVE [Suspect]
     Active Substance: CARBOXYMETHYLCELLULOSE SODIUM\GLYCERIN
     Indication: Postoperative care
     Route: 047
  2. REFRESH DIGITAL [Suspect]
     Active Substance: CARBOXYMETHYLCELLULOSE SODIUM\GLYCERIN\POLYSORBATE 80
     Indication: Product used for unknown indication
     Route: 047
     Dates: start: 2023

REACTIONS (5)
  - Neovascular age-related macular degeneration [Unknown]
  - Gastrointestinal stromal tumour [Unknown]
  - Dry age-related macular degeneration [Unknown]
  - Immunodeficiency [Unknown]
  - Dry eye [Unknown]

NARRATIVE: CASE EVENT DATE: 19991101
